FAERS Safety Report 17478979 (Version 1)
Quarter: 2020Q1

REPORT INFORMATION
  Report Type: Spontaneous
  Country: US (occurrence: US)
  Receive Date: 20200228
  Receipt Date: 20200228
  Transmission Date: 20200409
  Serious: No
  Sender: FDA-Public Use
  Company Number: US-ELI_LILLY_AND_COMPANY-US202002014011

PATIENT
  Sex: Female

DRUGS (2)
  1. EMGALITY [Suspect]
     Active Substance: GALCANEZUMAB-GNLM
     Indication: CLUSTER HEADACHE
     Dosage: 120 MG
     Route: 065
     Dates: start: 201904
  2. OXITRIPTAN [Concomitant]
     Active Substance: OXITRIPTAN
     Indication: PROPHYLAXIS

REACTIONS (3)
  - Off label use [Unknown]
  - Headache [Unknown]
  - Inappropriate schedule of product administration [Unknown]
